FAERS Safety Report 25840602 (Version 1)
Quarter: 2025Q3

REPORT INFORMATION
  Report Type: Report from Study
  Country: US (occurrence: US)
  Receive Date: 20250924
  Receipt Date: 20250924
  Transmission Date: 20251020
  Serious: Yes (Hospitalization, Other)
  Sender: GILEAD
  Company Number: US-GILEAD-2025-0729492

PATIENT
  Age: 32 Year
  Sex: Female

DRUGS (1)
  1. AZTREONAM LYSINE [Suspect]
     Active Substance: AZTREONAM LYSINE
     Indication: Cystic fibrosis
     Dosage: 75 MG, TID (FOR 28 DAYS, THEN OFF FOR 28 DAYS. REPE  )
     Route: 055
     Dates: start: 20220721

REACTIONS (7)
  - Infective pulmonary exacerbation of cystic fibrosis [Unknown]
  - Exercise tolerance decreased [Unknown]
  - Nasal inflammation [Unknown]
  - Nasal congestion [Unknown]
  - Productive cough [Unknown]
  - Loss of personal independence in daily activities [Unknown]
  - Social problem [Unknown]

NARRATIVE: CASE EVENT DATE: 20250903
